FAERS Safety Report 23680287 (Version 1)
Quarter: 2024Q1

REPORT INFORMATION
  Report Type: Other
  Country: IT (occurrence: IT)
  Receive Date: 20240328
  Receipt Date: 20240328
  Transmission Date: 20240409
  Serious: Yes (Other)
  Sender: FDA-Public Use
  Company Number: IT-DENTSPLY-2024SCDP000077

PATIENT
  Age: 69 Year
  Sex: Male
  Weight: 100 kg

DRUGS (9)
  1. MEPIVACAINE HYDROCHLORIDE [Suspect]
     Active Substance: MEPIVACAINE HYDROCHLORIDE
     Indication: Local anaesthesia
     Dosage: 250 MILLIGRAM OF MEPIVACAINE SOLUTION FOR INJECTION (PDF)
     Route: 008
     Dates: start: 20240223, end: 20240223
  2. PROPOFOL [Suspect]
     Active Substance: PROPOFOL
     Indication: General anaesthesia
     Dosage: 200 MILLIGRAM UNIFOL SOLUTION FOR INJECTION (PDF)
     Route: 042
     Dates: start: 20240223, end: 20240223
  3. ROPIVACAINE [Suspect]
     Active Substance: ROPIVACAINE
     Indication: Local anaesthesia
     Dosage: 120 MILLIGRAM ROPIVACAINE SOLUTION FOR INJECTION (PDF)
     Route: 008
     Dates: start: 20240223, end: 20240223
  4. ROCURONIUM BROMIDE [Suspect]
     Active Substance: ROCURONIUM BROMIDE
     Indication: General anaesthesia
     Dosage: 50 MILLIGRAM OF ESMERON SOLUTION FOR INJECTION (PDF)
     Route: 042
     Dates: start: 20240223, end: 20240223
  5. SUFENTANIL [Suspect]
     Active Substance: SUFENTANIL
     Indication: Anaesthesia
     Dosage: 5 MICROGRAM OF SUFENTANIL SOLUTION FOR INJECTION (PDF)
     Route: 042
     Dates: start: 20240223, end: 20240223
  6. SUFENTANIL [Suspect]
     Active Substance: SUFENTANIL
     Dosage: 10 MICROGRAM OF SUFENTANIL SOLUTION FOR INJECTION (PDF)
     Route: 042
     Dates: start: 20240223, end: 20240223
  7. MIDAZOLAM [Suspect]
     Active Substance: MIDAZOLAM
     Indication: Induction of anaesthesia
     Dosage: 3 MILLIGRAM OF MIDAZOLAM SOLUTION FOR INJECTION (PDF)
     Route: 042
     Dates: start: 20240223, end: 20240223
  8. TICHE [Concomitant]
     Indication: Hypothyroidism
     Dosage: 1 DOSAGE FORM PER 24 HOURS TICHE CAPSULE, SOFT (PDF)
     Route: 048
  9. OLMESARTAN MEDOXOMIL [Concomitant]
     Active Substance: OLMESARTAN MEDOXOMIL
     Indication: Hypertension
     Dosage: 1 DOSAGE FORM PER 24 HOURS
     Route: 048

REACTIONS (3)
  - Hypotension [Recovered/Resolved]
  - Erythema [Recovered/Resolved]
  - Anaphylactic shock [Recovered/Resolved]

NARRATIVE: CASE EVENT DATE: 20240223
